FAERS Safety Report 6661715-8 (Version None)
Quarter: 2010Q1

REPORT INFORMATION
  Report Type: 
  Country: None (occurrence: None)
  Receive Date: 20100331
  Receipt Date: 20090501
  Transmission Date: 20100710
  Serious: Yes (Other)
  Sender: FDA-Public Use
  Company Number: US-BRISTOL-MYERS SQUIBB COMPANY-14611263

PATIENT

DRUGS (1)
  1. ERBITUX [Suspect]
     Dosage: 1ST DOSE
     Dates: start: 20090401

REACTIONS (1)
  - ANAPHYLACTIC REACTION [None]
